FAERS Safety Report 4961475-2 (Version None)
Quarter: 2006Q1

REPORT INFORMATION
  Report Type: 
  Country: None (occurrence: None)
  Receive Date: 20060201
  Receipt Date: 20051020
  Transmission Date: 20060701
  Serious: No
  Sender: FDA-Public Use
  Company Number: 2005PV003827

PATIENT
  Age: 62 Year
  Sex: Male
  Weight: 147.8726 kg

DRUGS (6)
  1. BYETTA [Suspect]
     Indication: DIABETES MELLITUS NON-INSULIN-DEPENDENT
     Dosage: 5 MCG;BID;SC
     Route: 058
     Dates: start: 20051001
  2. AMARYL [Concomitant]
  3. METFORMIN [Concomitant]
  4. ALTACE [Concomitant]
  5. TRANDATE [Concomitant]
  6. COUMADIN [Concomitant]

REACTIONS (5)
  - DECREASED APPETITE [None]
  - EARLY SATIETY [None]
  - HEADACHE [None]
  - NAUSEA [None]
  - WEIGHT DECREASED [None]
